FAERS Safety Report 7245878-1 (Version None)
Quarter: 2011Q1

REPORT INFORMATION
  Report Type: 
  Country: None (occurrence: None)
  Receive Date: 20110126
  Receipt Date: 20110113
  Transmission Date: 20110831
  Serious: Yes (Hospitalization)
  Sender: FDA-Public Use
  Company Number: GB-ELI_LILLY_AND_COMPANY-GB201101002951

PATIENT
  Age: 28 Year
  Sex: Male

DRUGS (4)
  1. OLANZAPINE [Suspect]
     Dosage: 10 MG, UNK
     Route: 030
     Dates: start: 20101021
  2. LORAZEPAM [Concomitant]
  3. OLANZAPINE [Suspect]
     Indication: AGITATION
     Dosage: 5 MG, AS NEEDED
     Route: 048
     Dates: start: 20101019, end: 20101022
  4. ZOPLICONE [Concomitant]

REACTIONS (12)
  - URINARY RETENTION [None]
  - CONFUSIONAL STATE [None]
  - ELECTROCARDIOGRAM ABNORMAL [None]
  - HEART RATE INCREASED [None]
  - DEHYDRATION [None]
  - HYPERTENSION [None]
  - BLOOD CREATINE PHOSPHOKINASE INCREASED [None]
  - WHITE BLOOD CELL COUNT INCREASED [None]
  - HALLUCINATION, VISUAL [None]
  - AGITATION [None]
  - BODY TEMPERATURE INCREASED [None]
  - C-REACTIVE PROTEIN INCREASED [None]
